FAERS Safety Report 7196840-9 (Version None)
Quarter: 2010Q4

REPORT INFORMATION
  Report Type: 
  Country: None (occurrence: None)
  Receive Date: 20101223
  Receipt Date: 20101117
  Transmission Date: 20110411
  Serious: No
  Sender: FDA-Public Use
  Company Number: US-AMGEN INC.-KDL445062

PATIENT

DRUGS (3)
  1. ENBREL [Suspect]
     Indication: RHEUMATOID ARTHRITIS
     Dosage: 50 MG, QWK
     Route: 058
     Dates: start: 20100817
  2. ENBREL [Suspect]
     Dosage: 50 MG, QWK
     Route: 058
     Dates: start: 20100817
  3. METHOTREXATE [Concomitant]
     Dosage: 15 MG, QWK
     Route: 048

REACTIONS (4)
  - INJECTION SITE PAIN [None]
  - NASOPHARYNGITIS [None]
  - PAIN IN EXTREMITY [None]
  - RHINORRHOEA [None]
